FAERS Safety Report 5745877-2 (Version None)
Quarter: 2008Q2

REPORT INFORMATION
  Report Type: 
  Country: None (occurrence: None)
  Receive Date: 20080520
  Receipt Date: 20080505
  Transmission Date: 20081010
  Serious: Yes (Other)
  Sender: FDA-Public Use
  Company Number: 056-21880-08041579

PATIENT
  Age: 75 Year
  Sex: Female
  Weight: 55 kg

DRUGS (3)
  1. REVLIMID [Suspect]
     Indication: MULTIPLE MYELOMA
     Dosage: 10 MG, ORAL; 10 MG, ORAL
     Route: 048
     Dates: start: 20080221, end: 20080303
  2. REVLIMID [Suspect]
     Indication: MULTIPLE MYELOMA
     Dosage: 10 MG, ORAL; 10 MG, ORAL
     Route: 048
     Dates: start: 20080320, end: 20080409
  3. DECANCYL    ( DEXAMETASONE ACETATE) [Concomitant]

REACTIONS (6)
  - BLISTER [None]
  - PAIN [None]
  - RASH ERYTHEMATOUS [None]
  - SKIN BURNING SENSATION [None]
  - SKIN EXFOLIATION [None]
  - SKIN TOXICITY [None]
